FAERS Safety Report 4687315-7 (Version None)
Quarter: 2005Q2

REPORT INFORMATION
  Report Type: 
  Country: None (occurrence: None)
  Receive Date: 20050608
  Receipt Date: 20050526
  Transmission Date: 20051028
  Serious: Yes (Other)
  Sender: FDA-Public Use
  Company Number: 2005080641

PATIENT
  Age: 67 Year
  Sex: Female
  Weight: 81.6475 kg

DRUGS (21)
  1. BEXTRA [Suspect]
     Indication: ARTHRITIS
     Dosage: 10 MG (10 MG, 1 IN 1 D), ORAL
     Route: 048
     Dates: start: 20030101
  2. LIPITOR [Suspect]
     Indication: BLOOD CHOLESTEROL INCREASED
     Dosage: (1 IN 1 D), ORAL
     Route: 048
     Dates: start: 20000101, end: 20040101
  3. LEXAPRO [Concomitant]
  4. PREMARIN [Concomitant]
  5. CLORAZEPATE (CLORAZEPATE DIPOTASSIUM) [Concomitant]
  6. DICYCLOMINE (DICYCLOVERINE) [Concomitant]
  7. TRIAMTERENE AND HYDROCHLOROTHIAZID ^HARRIS^ [Concomitant]
  8. COZAAR [Concomitant]
  9. QUINAPRIL (QUINAPRIL HYDROCHLORIDE) [Concomitant]
  10. ACCUPRIL [Concomitant]
  11. ALAVERT (LORATADINE) [Concomitant]
  12. CLARITIN [Concomitant]
  13. OMEPRAZOLE [Concomitant]
  14. NASONEX (MOMETAOSNE FUROATE0 [Concomitant]
  15. LOTEMAX (LOTEPREDNOL ETABOANTE) [Concomitant]
  16. ALOMIDE (LODOXAMIDE) [Concomitant]
  17. MAXAIR [Concomitant]
  18. VITAMIN B6 (VITAMIN B6) [Concomitant]
  19. CALCIUM (CALCIUM) [Concomitant]
  20. GLUCOSAMINE W/CHONDROITIN SULFATES (ASCORBI ACID, CHONDROITIN SULFATE, [Concomitant]
  21. GLUCOSAMINE WITH MSM (GLUCOSAMINE, METHYLSULFONYLMETHANE) [Concomitant]

REACTIONS (10)
  - ARTHRITIS [None]
  - BLISTER [None]
  - CEREBROVASCULAR ACCIDENT [None]
  - CONDITION AGGRAVATED [None]
  - DRUG INTERACTION [None]
  - FURUNCLE [None]
  - MYALGIA [None]
  - SKIN HAEMORRHAGE [None]
  - SKIN INFECTION [None]
  - SOMNOLENCE [None]
